FAERS Safety Report 5479818-2 (Version None)
Quarter: 2007Q4

REPORT INFORMATION
  Report Type: 
  Country: None (occurrence: None)
  Receive Date: 20071003
  Receipt Date: 20070927
  Transmission Date: 20080405
  Serious: Yes (Death, Other)
  Sender: FDA-Public Use
  Company Number: 163-21880-06030683

PATIENT
  Age: 53 Year
  Sex: Female

DRUGS (1)
  1. REVLIMID [Suspect]
     Indication: MYELODYSPLASTIC SYNDROME
     Dosage: 10 MG, AT BEDTIME, ORAL
     Route: 048
     Dates: start: 20060225, end: 20060321

REACTIONS (4)
  - ACUTE MYELOID LEUKAEMIA [None]
  - CONSTIPATION [None]
  - DISEASE PROGRESSION [None]
  - MYELODYSPLASTIC SYNDROME [None]
